FAERS Safety Report 6570918-2 (Version None)
Quarter: 2010Q1

REPORT INFORMATION
  Report Type: 
  Country: None (occurrence: None)
  Receive Date: 20100203
  Receipt Date: 20100203
  Transmission Date: 20100710
  Serious: Yes (Life-Threatening, Disabling)
  Sender: FDA-Public Use
  Company Number: None

PATIENT
  Age: 89 Year
  Sex: Female
  Weight: 59.4212 kg

DRUGS (1)
  1. ARIPIPRAZOLE [Suspect]
     Indication: SCHIZOAFFECTIVE DISORDER
     Dosage: 15 MG QHS PO
     Route: 048
     Dates: start: 20090615, end: 20091218

REACTIONS (1)
  - HYPOTHERMIA [None]
